FAERS Safety Report 14386207 (Version 1)
Quarter: 2018Q1

REPORT INFORMATION
  Report Type: Spontaneous
  Country: US (occurrence: US)
  Receive Date: 20180115
  Receipt Date: 20180115
  Transmission Date: 20180509
  Serious: Yes (Other)
  Sender: FDA-Public Use
  Company Number: US-SA-2017SA076508

PATIENT
  Age: 58 Year
  Sex: Female
  Weight: 90.71 kg

DRUGS (15)
  1. DOXORUBICIN [Concomitant]
     Active Substance: DOXORUBICIN
     Indication: INVASIVE LOBULAR BREAST CARCINOMA
     Route: 042
     Dates: start: 20100205, end: 20100205
  2. BUPROPION. [Concomitant]
     Active Substance: BUPROPION
     Route: 065
     Dates: start: 2002, end: 2016
  3. TAXOTERE [Suspect]
     Active Substance: DOCETAXEL
     Indication: INVASIVE LOBULAR BREAST CARCINOMA
     Route: 051
     Dates: start: 20100205, end: 20100205
  4. DOXORUBICIN [Concomitant]
     Active Substance: DOXORUBICIN
     Indication: INVASIVE LOBULAR BREAST CARCINOMA
     Route: 042
     Dates: start: 20091023, end: 20091023
  5. HYDROCODONE [Concomitant]
     Active Substance: HYDROCODONE
  6. CYCLOPHOSPHAMIDE. [Concomitant]
     Active Substance: CYCLOPHOSPHAMIDE
     Indication: INVASIVE LOBULAR BREAST CARCINOMA
     Route: 042
     Dates: start: 20100205, end: 20100205
  7. WELLBUTRIN [Concomitant]
     Active Substance: BUPROPION HYDROCHLORIDE
     Route: 048
  8. TAXOTERE [Suspect]
     Active Substance: DOCETAXEL
     Indication: INVASIVE LOBULAR BREAST CARCINOMA
     Route: 051
     Dates: start: 20091023, end: 20091023
  9. SIMVASTATIN. [Concomitant]
     Active Substance: SIMVASTATIN
     Route: 048
     Dates: start: 2002
  10. LORAZEPAM. [Concomitant]
     Active Substance: LORAZEPAM
  11. CYCLOPHOSPHAMIDE. [Concomitant]
     Active Substance: CYCLOPHOSPHAMIDE
     Indication: INVASIVE LOBULAR BREAST CARCINOMA
     Route: 042
     Dates: start: 20091023, end: 20091023
  12. LISINOPRIL. [Concomitant]
     Active Substance: LISINOPRIL
     Route: 048
     Dates: start: 2002
  13. ONDANSETRON [Concomitant]
     Active Substance: ONDANSETRON
  14. TRIAM [Concomitant]
     Active Substance: TRIAMCINOLONE
     Route: 065
     Dates: start: 20080612, end: 2010
  15. DEXAMETHASONE. [Concomitant]
     Active Substance: DEXAMETHASONE

REACTIONS (3)
  - Psychological trauma [Unknown]
  - Emotional distress [Unknown]
  - Alopecia [Not Recovered/Not Resolved]

NARRATIVE: CASE EVENT DATE: 200911
